FAERS Safety Report 11165272 (Version 3)
Quarter: 2015Q3

REPORT INFORMATION
  Report Type: Report from Study
  Country: VN (occurrence: VN)
  Receive Date: 20150604
  Receipt Date: 20150714
  Transmission Date: 20151125
  Serious: Yes (Hospitalization)
  Sender: FDA-Public Use
  Company Number: VN-009507513-1506VNM001965

PATIENT
  Age: 33 Year
  Sex: Male

DRUGS (5)
  1. PEGINTERFERON ALFA-2B [Suspect]
     Active Substance: PEGINTERFERON ALFA-2B
     Indication: HEPATITIS C
     Dosage: 80 MICROGRAM, QW
     Route: 058
     Dates: start: 20140916, end: 20150304
  2. ATRIPLA [Concomitant]
     Active Substance: EFAVIRENZ\EMTRICITABINE\TENOFOVIR DISOPROXIL FUMARATE
     Indication: HIV INFECTION
     Dosage: 1 TABLET, QD. FORMULATION: TDF 300MG/ 3TC 150MG/ EFV 600MG, STRENGTH: 1 TABLET
     Route: 048
     Dates: start: 20140329
  3. ETHAMBUTOL HYDROCHLORIDE (+) ISONIAZID (+) RIFAMPIN [Concomitant]
     Indication: TUBERCULOSIS
     Dosage: FORMULATION: TABLETS/CAPSULES
     Route: 048
     Dates: start: 20150518, end: 20150518
  4. RIBAVIRIN. [Suspect]
     Active Substance: RIBAVIRIN
     Indication: HEPATITIS C
     Dosage: 40 MG, BID
     Route: 048
     Dates: start: 20140916, end: 20150304
  5. PYRAZINAMIDE. [Suspect]
     Active Substance: PYRAZINAMIDE
     Indication: TUBERCULOSIS
     Dosage: 1000 MG, QD
     Route: 048
     Dates: start: 20150518, end: 20150518

REACTIONS (1)
  - Rash [Recovering/Resolving]

NARRATIVE: CASE EVENT DATE: 20150518
